FAERS Safety Report 8457180-0 (Version None)
Quarter: 2012Q2

REPORT INFORMATION
  Report Type: 
  Country: None (occurrence: None)
  Receive Date: 20120621
  Receipt Date: 20120618
  Transmission Date: 20120825
  Serious: Yes (Death)
  Sender: FDA-Public Use
  Company Number: US-GILEAD-2012-0054802

PATIENT
  Sex: Female

DRUGS (6)
  1. LANTUS [Concomitant]
     Indication: DIABETES MELLITUS
  2. LOSARTAN POTASSIUM [Concomitant]
     Indication: HYPERTENSION
  3. MULTIPLE VITAMINS [Concomitant]
     Indication: SUPPLEMENTATION THERAPY
  4. EFAVIRENZ/EMTRICITABINE/TENOFOVIR DISOPROXIL FUMARATE [Suspect]
     Indication: HIV INFECTION
     Dosage: 1100 MG, QD
     Route: 048
     Dates: start: 20111011, end: 20120429
  5. BACTRIM [Concomitant]
     Indication: PROPHYLAXIS
  6. AZITHROMYCIN [Concomitant]
     Indication: PROPHYLAXIS
     Dosage: 1200 MG, Q1WK
     Route: 048

REACTIONS (1)
  - RENAL FAILURE [None]
